FAERS Safety Report 6942222-1 (Version None)
Quarter: 2010Q3

REPORT INFORMATION
  Report Type: 
  Country: None (occurrence: None)
  Receive Date: 20100820
  Receipt Date: 20100804
  Transmission Date: 20110219
  Serious: Yes (Other)
  Sender: FDA-Public Use
  Company Number: C-10-0167-W

PATIENT
  Age: 46 Year
  Sex: Female
  Weight: 84.369 kg

DRUGS (4)
  1. LISINOPRIL [Suspect]
     Indication: HYPERTENSION
     Dosage: ONE TABLET DAILY 047
     Dates: start: 20100710, end: 20100720
  2. HYDROCODONE [Concomitant]
  3. ALPRAZOLAM [Concomitant]
  4. METFORMIN [Concomitant]

REACTIONS (3)
  - BLOOD PRESSURE SYSTOLIC INCREASED [None]
  - DYSPHAGIA [None]
  - DYSPNOEA [None]
